FAERS Safety Report 13199291 (Version 1)
Quarter: 2017Q1

REPORT INFORMATION
  Report Type: Spontaneous
  Country: CA (occurrence: CA)
  Receive Date: 20170208
  Receipt Date: 20170208
  Transmission Date: 20170428
  Serious: Yes (Other)
  Sender: FDA-Public Use
  Company Number: CA-SA-2017SA018107

PATIENT
  Age: 53 Year
  Sex: Female

DRUGS (1)
  1. DOCETAXEL. [Suspect]
     Active Substance: DOCETAXEL
     Indication: BREAST CANCER
     Dosage: SOLUTION?INTRAVENOUS
     Route: 042

REACTIONS (4)
  - Rash [Unknown]
  - Eye disorder [Unknown]
  - Nausea [Unknown]
  - Flushing [Unknown]
